FAERS Safety Report 8804411 (Version 2)
Quarter: 2012Q4

REPORT INFORMATION
  Report Type: 
  Country: US (occurrence: US)
  Receive Date: 20120924
  Receipt Date: 20121226
  Transmission Date: 20130627
  Serious: Yes (Hospitalization)
  Sender: FDA-Public Use
  Company Number: US-BAYER-2012-097722

PATIENT
  Age: 26 Year
  Sex: Female
  Weight: 86.17 kg

DRUGS (5)
  1. YAZ [Suspect]
  2. YASMIN [Suspect]
  3. OCELLA [Suspect]
  4. CIPRO [Concomitant]
     Indication: UTI
     Dosage: 500 mg, BID
     Route: 048
     Dates: start: 20060918
  5. PRILOSEC [Concomitant]
     Dosage: 20 mg, QD
     Route: 048

REACTIONS (2)
  - Injury [None]
  - Pulmonary embolism [None]
